FAERS Safety Report 12430468 (Version 1)
Quarter: 2016Q2

REPORT INFORMATION
  Report Type: Spontaneous
  Country: US (occurrence: US)
  Receive Date: 20160602
  Receipt Date: 20160602
  Transmission Date: 20160815
  Serious: Yes (Other)
  Sender: FDA-Public Use
  Company Number: US-BAUSCH-BL-2016-009139

PATIENT
  Age: 39 Year
  Sex: Female
  Weight: 79.45 kg

DRUGS (1)
  1. RUCONEST [Suspect]
     Active Substance: HUMAN C1-ESTERASE INHIBITOR
     Indication: HEREDITARY ANGIOEDEMA
     Dosage: THREE TIMES A WEEK MORE OR LESS
     Route: 042
     Dates: start: 20160116, end: 20160412

REACTIONS (3)
  - Subclavian vein thrombosis [Recovering/Resolving]
  - Complement factor C4 decreased [Unknown]
  - Drug ineffective [Not Recovered/Not Resolved]

NARRATIVE: CASE EVENT DATE: 201604
